FAERS Safety Report 4767409-8 (Version None)
Quarter: 2005Q3

REPORT INFORMATION
  Report Type: 
  Country: None (occurrence: None)
  Receive Date: 20050909
  Receipt Date: 20050218
  Transmission Date: 20060218
  Serious: Yes (Other)
  Sender: FDA-Public Use
  Company Number: ALMO2005010

PATIENT
  Age: 40 Year
  Sex: Female

DRUGS (1)
  1. AXERT [Suspect]

REACTIONS (1)
  - MYOCARDIAL INFARCTION [None]
